FAERS Safety Report 10538304 (Version 3)
Quarter: 2014Q4

REPORT INFORMATION
  Report Type: Spontaneous
  Country: GB (occurrence: None)
  Receive Date: 20141021
  Receipt Date: 20141106
  Transmission Date: 20150529
  Serious: Yes (Other)
  Sender: FDA-Public Use
  Company Number: NL01PV14.37624

PATIENT
  Age: 82 Year
  Sex: Male

DRUGS (7)
  1. AMLODIPINE [Concomitant]
     Active Substance: AMLODIPINE BESYLATE
  2. LANSOPRAZOLE (LANSOPRAZOLE) [Concomitant]
     Active Substance: LANSOPRAZOLE
  3. AMITRIPTYLINE (AMITRIPTYLINE HYDROCHLORIDE) [Concomitant]
  4. ADCAL D3 (CALCIUM CARBONATE, COLECALCIFEROL) [Concomitant]
  5. DIFFUNDOX (TAMSULOSIN) CAPSULE [Suspect]
     Active Substance: TAMSULOSIN
     Indication: MICTURITION URGENCY
     Route: 048
  6. PARACETAMOL (PARACETAMOL) [Concomitant]
     Active Substance: ACETAMINOPHEN
  7. DIFFUNDOX (TAMSULOSIN) CAPSULE [Suspect]
     Active Substance: TAMSULOSIN
     Indication: PROSTATOMEGALY
     Route: 048

REACTIONS (9)
  - Wrong technique in drug usage process [None]
  - Therapy change [None]
  - Medication residue present [None]
  - Intercepted drug administration error [None]
  - Device occlusion [None]
  - Cerebrovascular accident [None]
  - Osteoarthritis [None]
  - No therapeutic response [None]
  - Hypertension [None]

NARRATIVE: CASE EVENT DATE: 20140326
